FAERS Safety Report 4428387-4 (Version None)
Quarter: 2004Q3

REPORT INFORMATION
  Report Type: 
  Country: None (occurrence: None)
  Receive Date: 20040813
  Receipt Date: 20040802
  Transmission Date: 20050211
  Serious: Yes (Life-Threatening, Hospitalization)
  Sender: FDA-Public Use
  Company Number: 2004212580JP

PATIENT
  Age: 67 Year
  Sex: Female

DRUGS (10)
  1. FARMORUBICIN RTU(EPIRUBICIN HYDROCHLORIDE) SOLUTION, STERILE [Suspect]
     Indication: BREAST CANCER FEMALE
     Dosage: 40 MG,TWICE A MONTH CYCLIC,IV
     Route: 042
     Dates: start: 20040101, end: 20040329
  2. FLUOROURACIL [Suspect]
     Indication: BREAST CANCER FEMALE
     Dosage: 750 MG, TWICE A MONTH, CYCLIC, IV
     Route: 042
     Dates: start: 20040101, end: 20040329
  3. CYCLOPHOSPHAMIDE [Suspect]
     Indication: BREAST CANCER FEMALE
     Dosage: 500 MG, TWICE A MONTH, CYCLIC , IV
     Route: 042
     Dates: start: 20040101, end: 20040329
  4. ARIMIDEX [Concomitant]
  5. BETAMETHASONE [Concomitant]
  6. ADENOSINE TRIPHOSPHATE [Concomitant]
  7. CEROCRAL (IFENPRODIL TARTRATE) [Concomitant]
  8. ETODOLAC [Concomitant]
  9. TIZANIDINE HCL [Concomitant]
  10. SEROTONE (AZASETRON HYDROCHLORIDE) [Concomitant]

REACTIONS (2)
  - DEEP VEIN THROMBOSIS [None]
  - LUNG DISORDER [None]
